FAERS Safety Report 4406762-1 (Version None)
Quarter: 2004Q3

REPORT INFORMATION
  Report Type: 
  Country: None (occurrence: None)
  Receive Date: 20040715
  Receipt Date: 20040707
  Transmission Date: 20050211
  Serious: Yes (Hospitalization)
  Sender: FDA-Public Use
  Company Number: STA-AE-04-MTX-296

PATIENT
  Age: 62 Year
  Sex: Female

DRUGS (4)
  1. METHOTREXATE [Suspect]
     Dosage: 7.5 MG
     Dates: start: 20031101
  2. CCI-779 (CCI-779, CAPSULE) [Suspect]
     Indication: RHEUMATOID ARTHRITIS
     Dosage: 4 MG (2 CAPS/DAY)
     Dates: start: 20040330, end: 20040413
  3. METHYLPREDNISOLONE [Concomitant]
  4. INDOMETHACIN 25MG CAP [Concomitant]

REACTIONS (5)
  - APHTHOUS STOMATITIS [None]
  - BRONCHOPNEUMONIA [None]
  - CYANOSIS [None]
  - GENERAL PHYSICAL HEALTH DETERIORATION [None]
  - STOMATITIS [None]
